FAERS Safety Report 9203544 (Version 1)
Quarter: 2013Q2

REPORT INFORMATION
  Report Type: Spontaneous
  Country: BR (occurrence: BR)
  Receive Date: 20130402
  Receipt Date: 20130402
  Transmission Date: 20140414
  Serious: Yes (Other)
  Sender: FDA-Public Use
  Company Number: PHHY2013BR030823

PATIENT
  Sex: Male
  Weight: 63 kg

DRUGS (2)
  1. RITALIN LA [Suspect]
     Indication: DISTURBANCE IN ATTENTION
     Dosage: 1 DF (20 MG), DAILY
     Route: 048
     Dates: start: 201302
  2. RITALIN LA [Suspect]
     Dosage: 1 DF (30 MG), DAILY
     Route: 048

REACTIONS (5)
  - Toxicity to various agents [Recovering/Resolving]
  - Hypersensitivity [Recovering/Resolving]
  - Erythema [Recovering/Resolving]
  - Skin exfoliation [Recovering/Resolving]
  - Mass [Recovering/Resolving]
